FAERS Safety Report 5312716-3 (Version None)
Quarter: 2007Q2

REPORT INFORMATION
  Report Type: 
  Country: None (occurrence: None)
  Receive Date: 20070430
  Receipt Date: 20070417
  Transmission Date: 20071010
  Serious: Yes (Other)
  Sender: FDA-Public Use
  Company Number: GB-PFIZER INC-2007031480

PATIENT
  Age: 70 Year
  Sex: Female

DRUGS (14)
  1. LYRICA [Suspect]
     Indication: PAIN
     Route: 048
     Dates: start: 20070208, end: 20070316
  2. ALENDRONATE SODIUM [Concomitant]
     Route: 048
  3. ACETYLSALICYLIC ACID SRT [Concomitant]
     Route: 048
  4. BECLOMETHASONE DIPROPIONATE [Concomitant]
     Route: 055
  5. DIAZEPAM [Concomitant]
     Route: 048
  6. FENTANYL [Concomitant]
     Route: 062
  7. FUROSEMIDE [Concomitant]
     Route: 048
  8. GLICLAZIDE [Concomitant]
     Route: 048
  9. LANSOPRAZOLE [Concomitant]
     Route: 048
  10. LISINOPRIL [Concomitant]
     Route: 048
  11. LOFEPRAMINE [Concomitant]
     Route: 048
  12. SENNA [Concomitant]
     Route: 048
  13. SIMVASTATIN [Concomitant]
     Route: 048
  14. ZOPICLONE [Concomitant]
     Route: 048

REACTIONS (3)
  - RENAL FAILURE ACUTE [None]
  - RHABDOMYOLYSIS [None]
  - URINARY TRACT INFECTION [None]
